FAERS Safety Report 18163609 (Version 1)
Quarter: 2020Q3

REPORT INFORMATION
  Report Type: Spontaneous
  Country: US (occurrence: US)
  Receive Date: 20200818
  Receipt Date: 20200818
  Transmission Date: 20201103
  Serious: No
  Sender: FDA-Public Use
  Company Number: US-BAYER-2020-166702

PATIENT
  Age: 74 Year
  Sex: Female

DRUGS (1)
  1. LOTRIMIN ULTRA ANTIFUNGAL [Suspect]
     Active Substance: BUTENAFINE HYDROCHLORIDE
     Indication: SKIN CANDIDA
     Dosage: ACROSS CHEST, BID
     Route: 061
     Dates: start: 20200806, end: 20200809

REACTIONS (3)
  - Product use in unapproved indication [None]
  - Periorbital swelling [Recovering/Resolving]
  - Swelling face [Recovering/Resolving]

NARRATIVE: CASE EVENT DATE: 20200806
